FAERS Safety Report 11443716 (Version 1)
Quarter: 2015Q3

REPORT INFORMATION
  Report Type: Spontaneous
  Country: RU (occurrence: RU)
  Receive Date: 20150901
  Receipt Date: 20150901
  Transmission Date: 20151125
  Serious: Yes (Other)
  Sender: FDA-Public Use
  Company Number: RU-SEATTLE GENETICS-2015SGN01393

PATIENT
  Age: 14 Year
  Sex: Female

DRUGS (1)
  1. ADCETRIS [Suspect]
     Active Substance: BRENTUXIMAB VEDOTIN
     Indication: HODGKIN^S DISEASE
     Dosage: 1.8 MG/KG, Q3WEEKS
     Route: 065

REACTIONS (10)
  - Osteonecrosis [Unknown]
  - Pneumonia respiratory syncytial viral [Unknown]
  - Off label use [Unknown]
  - Mucosal membrane hyperplasia [Unknown]
  - Pericarditis [Unknown]
  - Cardiac failure [Unknown]
  - General physical health deterioration [Unknown]
  - Graft versus host disease [Unknown]
  - Glomerulonephritis chronic [Unknown]
  - Pyrexia [Unknown]
